FAERS Safety Report 5596604-3 (Version None)
Quarter: 2008Q1

REPORT INFORMATION
  Report Type: 
  Country: None (occurrence: None)
  Receive Date: 20080118
  Receipt Date: 20080108
  Transmission Date: 20080703
  Serious: Yes (Hospitalization)
  Sender: FDA-Public Use
  Company Number: US-PFIZER INC-2008002503

PATIENT
  Age: 67 Year
  Sex: Female
  Weight: 53 kg

DRUGS (6)
  1. SUTENT [Suspect]
     Indication: RENAL CELL CARCINOMA
     Route: 048
     Dates: start: 20070601, end: 20070924
  2. SORAFENIB TOSILATE [Suspect]
     Indication: RENAL CELL CARCINOMA
     Route: 048
     Dates: start: 20070601, end: 20071008
  3. ZETIA [Concomitant]
  4. DILTIAZEM HCL [Concomitant]
  5. DIOVAN [Concomitant]
  6. PLAVIX [Concomitant]

REACTIONS (4)
  - CEREBRAL ARTERY THROMBOSIS [None]
  - CEREBRAL ISCHAEMIA [None]
  - MITRAL VALVE INCOMPETENCE [None]
  - TRICUSPID VALVE INCOMPETENCE [None]
